FAERS Safety Report 8008720-7 (Version None)
Quarter: 2011Q4

REPORT INFORMATION
  Report Type: 
  Country: None (occurrence: None)
  Receive Date: 20111227
  Receipt Date: 20111207
  Transmission Date: 20120403
  Serious: No
  Sender: FDA-Public Use
  Company Number: CH-ROCHE-1022194

PATIENT
  Age: 29 Year
  Sex: Female

DRUGS (1)
  1. ISOTRETINOIN [Suspect]
     Indication: ACNE
     Route: 064
     Dates: start: 20110917

REACTIONS (2)
  - ABORTION INDUCED [None]
  - MATERNAL EXPOSURE BEFORE PREGNANCY [None]
